FAERS Safety Report 5620289-0 (Version None)
Quarter: 2008Q1

REPORT INFORMATION
  Report Type: 
  Country: None (occurrence: None)
  Receive Date: 20080208
  Receipt Date: 20080207
  Transmission Date: 20080703
  Serious: Yes (Other)
  Sender: FDA-Public Use
  Company Number: A0708083A

PATIENT
  Age: 36 Year
  Sex: Female

DRUGS (8)
  1. ALLI [Suspect]
     Route: 048
     Dates: start: 20080205, end: 20080206
  2. PROZAC [Concomitant]
  3. KLONOPIN [Concomitant]
  4. WELLBUTRIN [Concomitant]
  5. SEROQUEL [Concomitant]
  6. LAMICTAL [Concomitant]
  7. LISINOPRIL [Concomitant]
  8. METFORMIN HCL [Concomitant]

REACTIONS (1)
  - COAGULOPATHY [None]
